FAERS Safety Report 12664443 (Version 2)
Quarter: 2016Q3

REPORT INFORMATION
  Report Type: Spontaneous
  Country: US (occurrence: US)
  Receive Date: 20160818
  Receipt Date: 20160823
  Transmission Date: 20161109
  Serious: No
  Sender: FDA-Public Use
  Company Number: US-PFIZER INC-2016364858

PATIENT
  Age: 90 Year
  Sex: Female
  Weight: 56.25 kg

DRUGS (7)
  1. ASPIRIN. [Concomitant]
     Active Substance: ASPIRIN
     Dosage: 81 MG, 1X/DAY
     Route: 048
  2. PRILOSEC [Concomitant]
     Active Substance: OMEPRAZOLE MAGNESIUM
     Indication: DYSPEPSIA
     Dosage: 1 DF, 1X/DAY (1 TABLET BY MOUTH ONCE A DAY)
     Route: 048
     Dates: start: 20160726, end: 20160727
  3. DR. CHOICE [Concomitant]
     Indication: ABDOMINAL DISTENSION
  4. VITAMIN B12 [Concomitant]
     Active Substance: CYANOCOBALAMIN
     Indication: NUTRITIONAL SUPPLEMENTATION
     Dosage: 1000 MG, 1X/DAY
     Route: 048
  5. PREMARIN [Suspect]
     Active Substance: ESTROGENS, CONJUGATED
     Indication: MALAISE
     Dosage: 1 MG, UNK (CALLER THINKS IT WAS A 1GM DOSE, EVERY OTHER DAY)
  6. DR. CHOICE [Concomitant]
     Indication: FLATULENCE
     Dosage: 2 DF, AS NEEDED (2 TABLETS BY MOUTH MOUTH AS NEEDED)
     Route: 048
  7. AMLODIPINE [Concomitant]
     Active Substance: AMLODIPINE BESYLATE
     Indication: HYPERTENSION
     Dosage: 10 MG, 1X/DAY (10MG ONCE A DAY BY MOUTH AFTER SHE EATS)
     Route: 048

REACTIONS (3)
  - Diarrhoea [Not Recovered/Not Resolved]
  - Malaise [Not Recovered/Not Resolved]
  - Product use issue [Unknown]

NARRATIVE: CASE EVENT DATE: 20160726
